FAERS Safety Report 16730100 (Version 1)
Quarter: 2019Q3

REPORT INFORMATION
  Report Type: Spontaneous
  Country: US (occurrence: US)
  Receive Date: 20190822
  Receipt Date: 20190822
  Transmission Date: 20191005
  Serious: No
  Sender: FDA-Public Use
  Company Number: US-PACIRA-201500119

PATIENT
  Sex: Male

DRUGS (5)
  1. MARCAINE [Concomitant]
     Active Substance: BUPIVACAINE HYDROCHLORIDE
     Dosage: MIXED WITH EXPAREL, EPINEPHRINE, TORADOL AND MORPHINE IN THE SAME SYRINGE
     Route: 050
     Dates: start: 20150105, end: 20150105
  2. EPINEPHRINE. [Concomitant]
     Active Substance: EPINEPHRINE
     Dosage: MIXED WITH EXPAREL, MARCAINE, TORADOL AND MORPHINE IN THE SAME SYRINGE
     Route: 050
     Dates: start: 20150105, end: 20150105
  3. TORADOL [Concomitant]
     Active Substance: KETOROLAC TROMETHAMINE
     Dosage: MIXED WITH EXPAREL, MARCAINE, EPINEPHRINE AND MORPHINE IN THE SAME SYRINGE
     Route: 050
     Dates: start: 20150105, end: 20150105
  4. EXPAREL [Suspect]
     Active Substance: BUPIVACAINE
     Indication: POSTOPERATIVE ANALGESIA
     Dosage: 266 MG, 1X, MIXED WITH MARCAINE, EPINEPHRINE, TORADOL, MORPHINE IN SAME SYRINGE.
     Route: 050
     Dates: start: 20150105, end: 20150105
  5. MORPHINE [Concomitant]
     Active Substance: MORPHINE
     Dosage: MIXED WITH EXPAREL, MARCAINE, EPINEPHRINE AND TORADOL IN THE SAME SYRINGE
     Route: 050
     Dates: start: 20150105, end: 20150105

REACTIONS (3)
  - Pain [Unknown]
  - Peroneal nerve palsy [Recovered/Resolved]
  - Labelled drug-drug interaction medication error [Recovered/Resolved]

NARRATIVE: CASE EVENT DATE: 20150106
